FAERS Safety Report 16931094 (Version 2)
Quarter: 2019Q4

REPORT INFORMATION
  Report Type: Report from Study
  Country: GB (occurrence: GB)
  Receive Date: 20191017
  Receipt Date: 20191104
  Transmission Date: 20200122
  Serious: Yes (Hospitalization)
  Sender: FDA-Public Use
  Company Number: GB-OTSUKA-2019_035352

PATIENT
  Age: 46 Year
  Sex: Female

DRUGS (8)
  1. LYMECYCLINE [Concomitant]
     Active Substance: LYMECYCLINE
     Indication: ACNE
     Dosage: 408 MG, QD
     Route: 065
     Dates: start: 20180101
  2. TOLVAPTAN [Suspect]
     Active Substance: TOLVAPTAN
     Indication: CONGENITAL CYSTIC KIDNEY DISEASE
     Dosage: 90 MG, UNK
     Route: 048
     Dates: start: 20181129
  3. TOLVAPTAN [Suspect]
     Active Substance: TOLVAPTAN
     Dosage: 30 MG, UNK
     Route: 048
     Dates: start: 20181011
  4. TOLVAPTAN [Suspect]
     Active Substance: TOLVAPTAN
     Dosage: 45 MG, UNK
     Route: 048
     Dates: start: 20180907
  5. TOLVAPTAN [Suspect]
     Active Substance: TOLVAPTAN
     Dosage: 60 MG, UNK
     Route: 048
     Dates: start: 20181011
  6. LOSARTAN. [Concomitant]
     Active Substance: LOSARTAN
     Indication: HYPERTENSION
     Dosage: 100 MG, QD
     Route: 048
     Dates: start: 20120101
  7. TOLVAPTAN [Suspect]
     Active Substance: TOLVAPTAN
     Dosage: 30 MG, UNK
     Route: 048
     Dates: start: 20181129
  8. TOLVAPTAN [Suspect]
     Active Substance: TOLVAPTAN
     Dosage: 15 MG, UNK
     Route: 048
     Dates: start: 20180907

REACTIONS (1)
  - Nephrolithiasis [Recovered/Resolved with Sequelae]

NARRATIVE: CASE EVENT DATE: 20191008
